FAERS Safety Report 8367826-3 (Version None)
Quarter: 2012Q1

REPORT INFORMATION
  Report Type: 
  Country: None (occurrence: None)
  Receive Date: 20120323
  Receipt Date: 20111215
  Transmission Date: 20120608
  Serious: Yes (Hospitalization, Other)
  Sender: FDA-Public Use
  Company Number: 163-21880-11112150

PATIENT
  Age: 84 Year
  Sex: Female

DRUGS (8)
  1. SPIRIVA [Concomitant]
  2. ASPIRIN [Concomitant]
  3. REVLIMID [Suspect]
     Indication: MYELODYSPLASTIC SYNDROME
     Dosage: 5 MG, DAILY FOR 28 DAYS, PO
     Route: 048
     Dates: start: 20070802
  4. KONSYL (PSYLLIUM HYDROPHILIC MUCILLOID) [Concomitant]
  5. PROCRIT [Concomitant]
  6. VITAMIN D (ERGOCALIFEROL) [Concomitant]
  7. BLOOD TRANSFUSION (BLOOD AND RELATED PRODUCTS) [Concomitant]
  8. IMODIUM A-D (LOPERAMINE HYDROCHLORIDE) [Concomitant]

REACTIONS (4)
  - MYELODYSPLASTIC SYNDROME [None]
  - DISEASE PROGRESSION [None]
  - DRUG INEFFECTIVE [None]
  - PNEUMONIA [None]
